FAERS Safety Report 16551393 (Version 1)
Quarter: 2019Q3

REPORT INFORMATION
  Report Type: Report from Study
  Country: DE (occurrence: DE)
  Receive Date: 20190710
  Receipt Date: 20190710
  Transmission Date: 20191004
  Serious: Yes (Hospitalization, Other)
  Sender: FDA-Public Use
  Company Number: DE-GILEAD-2015-0165389

PATIENT
  Age: 63 Year
  Sex: Male
  Weight: 88 kg

DRUGS (7)
  1. MARCUMAR [Concomitant]
     Active Substance: PHENPROCOUMON
     Indication: CARDIOVASCULAR DISORDER
     Dosage: DAILY DOSE: 3 MG MILLIGRAM(S) EVERY DAY
  2. SOFOSBUVIR [Suspect]
     Active Substance: SOFOSBUVIR
     Indication: CHRONIC HEPATITIS C
     Dosage: 400 MG, QD
     Route: 048
     Dates: start: 20140222, end: 20140515
  3. RIBAVIRIN. [Suspect]
     Active Substance: RIBAVIRIN
     Indication: CHRONIC HEPATITIS C
     Dosage: 1200 MG, QD
     Route: 048
     Dates: start: 20140222, end: 20140515
  4. RIBAVIRIN. [Suspect]
     Active Substance: RIBAVIRIN
     Dosage: 200 MG, QD
     Route: 048
     Dates: start: 20140222, end: 20140515
  5. PEGINTERFERON ALFA-2B [Suspect]
     Active Substance: PEGINTERFERON ALFA-2B
     Indication: CHRONIC HEPATITIS C
     Dosage: 1.5 UG/KG, Q1WK
     Route: 058
     Dates: start: 20140222, end: 20140515
  6. ISOPTIN [VERAPAMIL HYDROCHLORIDE] [Concomitant]
     Indication: CARDIOVASCULAR DISORDER
     Dosage: DAILY DOSE: 80 MG MILLIGRAM(S) EVERY DAY
     Route: 048
  7. NOVODIGAL (.BETA.-ACETYLDIGOXIN) [Concomitant]
     Active Substance: .BETA.-ACETYLDIGOXIN
     Indication: CARDIOVASCULAR DISORDER
     Dosage: DAILY DOSE: 0.2 MG MILLIGRAM(S) EVERY DAY
     Route: 048

REACTIONS (6)
  - Transient ischaemic attack [Not Recovered/Not Resolved]
  - Dyspnoea [Recovered/Resolved]
  - Nocturia [Recovered/Resolved]
  - Alopecia [Unknown]
  - Depression [Recovered/Resolved]
  - Transient ischaemic attack [Recovered/Resolved]

NARRATIVE: CASE EVENT DATE: 20140321
